FAERS Safety Report 18953969 (Version 1)
Quarter: 2021Q1

REPORT INFORMATION
  Report Type: Spontaneous
  Country: US (occurrence: US)
  Receive Date: 20210301
  Receipt Date: 20210301
  Transmission Date: 20210420
  Serious: Yes (Other)
  Sender: FDA-Public Use
  Company Number: US-GLAXOSMITHKLINE-US2021GSK001078

PATIENT
  Sex: Female

DRUGS (14)
  1. RANITIDINE CAPSULE [Suspect]
     Active Substance: RANITIDINE
     Indication: GASTROOESOPHAGEAL REFLUX DISEASE
     Dosage: 75 MG BOTH
     Route: 048
     Dates: start: 201001, end: 202005
  2. RANITIDINE CAPSULE [Suspect]
     Active Substance: RANITIDINE
     Dosage: 150 MG BOTH
     Route: 048
     Dates: start: 201001, end: 202005
  3. RANITIDINE. [Suspect]
     Active Substance: RANITIDINE
     Dosage: 150 MG BOTH
     Route: 048
     Dates: start: 201001, end: 202005
  4. RANITIDINE. [Suspect]
     Active Substance: RANITIDINE
     Dosage: 300 MG, QD
     Route: 048
     Dates: start: 201001, end: 202005
  5. RANITIDINE. [Suspect]
     Active Substance: RANITIDINE
     Indication: GASTROOESOPHAGEAL REFLUX DISEASE
     Dosage: 75 MG BOTH
     Route: 048
     Dates: start: 201001, end: 202005
  6. ZANTAC [Suspect]
     Active Substance: RANITIDINE HYDROCHLORIDE
     Indication: GASTROOESOPHAGEAL REFLUX DISEASE
     Dosage: UNK
     Route: 065
  7. RANITIDINE. [Suspect]
     Active Substance: RANITIDINE
     Indication: GASTROOESOPHAGEAL REFLUX DISEASE
     Dosage: 75 MG BOTH
     Route: 048
     Dates: start: 201001, end: 202005
  8. RANITIDINE. [Suspect]
     Active Substance: RANITIDINE
     Dosage: 150 MG BOTH
     Route: 048
     Dates: start: 201001, end: 202005
  9. RANITIDINE. [Suspect]
     Active Substance: RANITIDINE
     Dosage: 150 MG BOTH
     Route: 048
     Dates: start: 201001, end: 202005
  10. RANITIDINE. [Suspect]
     Active Substance: RANITIDINE
     Dosage: 300 MG, QD
     Route: 048
     Dates: start: 201001, end: 202005
  11. RANITIDINE. [Suspect]
     Active Substance: RANITIDINE
     Indication: GASTROOESOPHAGEAL REFLUX DISEASE
     Dosage: 75 MG BOTH
     Route: 048
     Dates: start: 201001, end: 202005
  12. RANITIDINE CAPSULE [Suspect]
     Active Substance: RANITIDINE
     Dosage: 300 MG, QD
     Route: 048
     Dates: start: 201001, end: 202005
  13. RANITIDINE. [Suspect]
     Active Substance: RANITIDINE
     Dosage: 300 MG, QD
     Route: 048
     Dates: start: 201001, end: 202005
  14. ZANTAC [Suspect]
     Active Substance: RANITIDINE HYDROCHLORIDE
     Indication: GASTROOESOPHAGEAL REFLUX DISEASE
     Dosage: UNK
     Route: 065

REACTIONS (1)
  - Breast cancer [Unknown]
